FAERS Safety Report 8850500 (Version 3)
Quarter: 2013Q1

REPORT INFORMATION
  Report Type: Report from Study
  Country: DE (occurrence: DE)
  Receive Date: 20121019
  Receipt Date: 20130130
  Transmission Date: 20140127
  Serious: Yes (Death, Hospitalization)
  Sender: FDA-Public Use
  Company Number: DE-ROCHE-1144497

PATIENT
  Age: 77 Year
  Sex: Male
  Weight: 88 kg

DRUGS (9)
  1. TOCILIZUMAB [Suspect]
     Indication: RHEUMATOID ARTHRITIS
     Route: 042
     Dates: start: 20101123, end: 20120808
  2. TOCILIZUMAB [Suspect]
     Route: 042
     Dates: start: 201105, end: 201106
  3. TOCILIZUMAB [Suspect]
     Route: 042
     Dates: start: 201110, end: 20120808
  4. IBUPROFEN [Suspect]
     Indication: PRODUCT USED FOR UNKNOWN INDICATION
     Route: 065
  5. PREDNISOLON [Suspect]
     Indication: PRODUCT USED FOR UNKNOWN INDICATION
     Route: 065
  6. ALLOBETA [Concomitant]
     Route: 065
  7. OMEPRAZOL [Concomitant]
     Route: 065
  8. VIGANTOLETTEN [Concomitant]
     Route: 065
  9. TILIDIN [Concomitant]
     Indication: PAIN

REACTIONS (7)
  - Infection [Fatal]
  - Lung disorder [Fatal]
  - Sepsis [Fatal]
  - Delirium [Fatal]
  - Swollen tongue [Recovering/Resolving]
  - Angioedema [Recovering/Resolving]
  - Leukoencephalopathy [Not Recovered/Not Resolved]
